FAERS Safety Report 5443242-9 (Version None)
Quarter: 2007Q3

REPORT INFORMATION
  Report Type: 
  Country: None (occurrence: None)
  Receive Date: 20070830
  Receipt Date: 20070815
  Transmission Date: 20080115
  Serious: Yes (Hospitalization, Other)
  Sender: FDA-Public Use
  Company Number: 2007US-09492

PATIENT
  Age: 68 Year
  Sex: Male

DRUGS (10)
  1. ISOPTIN SR [Suspect]
     Indication: ATRIAL FIBRILLATION
     Dosage: 120 MG, QD, AURICULAR
     Route: 001
     Dates: end: 20070116
  2. DIGOXIN [Suspect]
     Indication: ATRIAL FIBRILLATION
     Dosage: 250 UG, QD, OCCLUSIVE
     Route: 046
     Dates: end: 20070116
  3. ACENOCOUMAROL [Concomitant]
  4. FUROSEMIDE [Concomitant]
  5. ALLOPURINOL [Concomitant]
  6. ENALAPRIL MALEATE                         UNKNOWN [Concomitant]
  7. TIOTROPIUM BROMIDE [Concomitant]
  8. SERETIDE [Concomitant]
  9. FUMIL FORTE [Concomitant]
  10. OMEPRAZOLE                        UNKNOWN [Concomitant]

REACTIONS (4)
  - ATRIOVENTRICULAR BLOCK COMPLETE [None]
  - DIZZINESS [None]
  - DRUG INTERACTION [None]
  - NAUSEA [None]
